FAERS Safety Report 8036928-3 (Version None)
Quarter: 2012Q1

REPORT INFORMATION
  Report Type: 
  Country: None (occurrence: None)
  Receive Date: 20120111
  Receipt Date: 20120104
  Transmission Date: 20120608
  Serious: Yes (Death, Hospitalization)
  Sender: FDA-Public Use
  Company Number: CZ-SANOFI-AVENTIS-2012SA000929

PATIENT
  Age: 71 Year
  Sex: Female
  Weight: 95 kg

DRUGS (7)
  1. BLINDED THERAPY [Suspect]
     Route: 042
     Dates: start: 20111124, end: 20111124
  2. DOCETAXEL [Suspect]
     Route: 041
     Dates: start: 20111013, end: 20111013
  3. DOCETAXEL [Suspect]
     Route: 041
     Dates: start: 20111124, end: 20111124
  4. LETROX [Concomitant]
  5. DIAPREL [Concomitant]
  6. BLINDED THERAPY [Suspect]
     Route: 042
     Dates: start: 20111013, end: 20111013
  7. FORTECORTIN [Concomitant]

REACTIONS (5)
  - TACHYCARDIA [None]
  - TACHYPNOEA [None]
  - CARDIOPULMONARY FAILURE [None]
  - HYPERGLYCAEMIA [None]
  - DYSPNOEA [None]
